FAERS Safety Report 21285721 (Version 1)
Quarter: 2022Q3

REPORT INFORMATION
  Report Type: Spontaneous
  Country: CN (occurrence: None)
  Receive Date: 20220902
  Receipt Date: 20220902
  Transmission Date: 20221027
  Serious: Yes (Other)
  Sender: FDA-Public Use
  Company Number: CN-ROCHE-3172224

PATIENT
  Age: 78 Year
  Sex: Male

DRUGS (19)
  1. MABTHERA [Suspect]
     Active Substance: RITUXIMAB
     Indication: Diffuse large B-cell lymphoma
     Dosage: 1ST-2ND CYCLES OF R-MINI-CHOP
     Route: 065
     Dates: start: 20170324
  2. MABTHERA [Suspect]
     Active Substance: RITUXIMAB
     Dosage: 3RD-4TH CYCLES OF R
     Route: 065
     Dates: start: 20170622
  3. MABTHERA [Suspect]
     Active Substance: RITUXIMAB
     Dosage: 5TH-8TH CYCLES OF R-MINI-CHOP
     Route: 065
     Dates: start: 20170919
  4. MABTHERA [Suspect]
     Active Substance: RITUXIMAB
     Dosage: 1ST CYCLE OF R-CHOP
     Route: 065
     Dates: start: 20220122
  5. GAZYVA [Suspect]
     Active Substance: OBINUTUZUMAB
     Indication: Diffuse large B-cell lymphoma
     Dosage: 2ND-6TH CYCLES OF ZGR
     Route: 042
     Dates: start: 20220211
  6. CYCLOPHOSPHAMIDE [Concomitant]
     Active Substance: CYCLOPHOSPHAMIDE
     Indication: Diffuse large B-cell lymphoma
     Dosage: 1ST-2ND CYCLES OF R-MINI-CHOP
     Dates: start: 20170324
  7. CYCLOPHOSPHAMIDE [Concomitant]
     Active Substance: CYCLOPHOSPHAMIDE
     Dosage: 5TH-8TH CYCLES OF R-MINI-CHOP
     Dates: start: 20170919
  8. CYCLOPHOSPHAMIDE [Concomitant]
     Active Substance: CYCLOPHOSPHAMIDE
     Dosage: 1ST CYCLE OF R-CHOP
     Dates: start: 20220122
  9. DOXORUBICIN [Concomitant]
     Active Substance: DOXORUBICIN
     Indication: Diffuse large B-cell lymphoma
     Dosage: 1ST-2ND CYCLES OF R-MINI-CHOP
     Dates: start: 20170324
  10. DOXORUBICIN [Concomitant]
     Active Substance: DOXORUBICIN
     Dosage: 5TH-8TH CYCLES OF R-MINI-CHOP
     Dates: start: 20170919
  11. DOXORUBICIN [Concomitant]
     Active Substance: DOXORUBICIN
     Dosage: 1ST CYCLE OF R-CHOP
     Dates: start: 20220122
  12. VINCRISTINE [Concomitant]
     Active Substance: VINCRISTINE
     Indication: Diffuse large B-cell lymphoma
     Dosage: 1ST-2ND CYCLES OF R-MINI-CHOP
     Dates: start: 20170324
  13. VINCRISTINE [Concomitant]
     Active Substance: VINCRISTINE
     Dosage: 5TH-8TH CYCLES OF R-MINI-CHOP
     Dates: start: 20170919
  14. VINCRISTINE [Concomitant]
     Active Substance: VINCRISTINE
     Dosage: 1ST CYCLE OF R-CHOP
     Dates: start: 20220122
  15. PREDNISONE [Concomitant]
     Active Substance: PREDNISONE
     Indication: Diffuse large B-cell lymphoma
     Dosage: 1ST-2ND CYCLES OF R-MINI-CHOP
     Dates: start: 20170324
  16. PREDNISONE [Concomitant]
     Active Substance: PREDNISONE
     Dosage: 5TH-8TH CYCLES OF R-MINI-CHOP
     Dates: start: 20170919
  17. PREDNISONE [Concomitant]
     Active Substance: PREDNISONE
     Dosage: 1ST CYCLE OF R-CHOP
     Dates: start: 20220122
  18. ZANUBRUTINIB [Concomitant]
     Active Substance: ZANUBRUTINIB
     Indication: Diffuse large B-cell lymphoma
     Dosage: 2ND-6TH CYCLES OF ZGR
     Dates: start: 20220211
  19. LENALIDOMIDE [Concomitant]
     Active Substance: LENALIDOMIDE
     Indication: Diffuse large B-cell lymphoma
     Dosage: 2ND-6TH CYCLES OF ZGR
     Dates: start: 20220211

REACTIONS (2)
  - Off label use [Unknown]
  - Lymphoma [Unknown]
